FAERS Safety Report 8805904 (Version 1)
Quarter: 2012Q4

REPORT INFORMATION
  Report Type: Spontaneous
  Country: US (occurrence: None)
  Receive Date: 20120919
  Receipt Date: 20120919
  Transmission Date: 20130627
  Serious: Yes (Hospitalization)
  Sender: FDA-Public Use
  Company Number: None

PATIENT
  Age: 61 Year
  Sex: Male
  Weight: 110.6 kg

DRUGS (2)
  1. DIAZEPAM [Suspect]
     Indication: POST-TRAUMATIC STRESS DISORDER
     Route: 048
     Dates: start: 20120725, end: 20120825
  2. DIAZEPAM [Suspect]
     Indication: ANXIETY
     Route: 048
     Dates: start: 20120725, end: 20120825

REACTIONS (4)
  - Alcohol poisoning [None]
  - Confusional state [None]
  - Apnoea [None]
  - Respiratory depression [None]
